FAERS Safety Report 7550535-8 (Version None)
Quarter: 2011Q2

REPORT INFORMATION
  Report Type: 
  Country: None (occurrence: None)
  Receive Date: 20110615
  Receipt Date: 20110602
  Transmission Date: 20111010
  Serious: Yes (Hospitalization)
  Sender: FDA-Public Use
  Company Number: KR-MYLANLABS-2011S1011663

PATIENT
  Age: 77 Year
  Sex: Female

DRUGS (3)
  1. LEUCOVORIN CALCIUM [Concomitant]
     Indication: RECTAL CANCER
     Dosage: 32MG (20 MG/M2) FOR 5 CONSECUTIVE DAYS EVERY 3 WEEKS
     Route: 042
     Dates: start: 20100201, end: 20100515
  2. ONDANSETRON [Concomitant]
     Indication: ANTIEMETIC SUPPORTIVE CARE
     Route: 065
     Dates: start: 20100216
  3. FLUOROURACIL [Suspect]
     Indication: RECTAL CANCER
     Dosage: 790MG (500 MG/M2) FOR 5 CONSECUTIVE DAYS EVERY 3 WEEKS
     Route: 042
     Dates: start: 20100201, end: 20100515

REACTIONS (1)
  - MANIA [None]
